FAERS Safety Report 16908711 (Version 1)
Quarter: 2019Q4

REPORT INFORMATION
  Report Type: Spontaneous
  Country: US (occurrence: US)
  Receive Date: 20191011
  Receipt Date: 20191011
  Transmission Date: 20200122
  Serious: Yes (Other)
  Sender: FDA-Public Use
  Company Number: None

PATIENT
  Age: 60 Year
  Sex: Female
  Weight: 96.3 kg

DRUGS (7)
  1. NYSTATIN. [Concomitant]
     Active Substance: NYSTATIN
  2. VITAMINS (GNC FOR 50+ WOMEN) [Concomitant]
  3. CEFDINIR. [Suspect]
     Active Substance: CEFDINIR
     Indication: SINUSITIS
     Dosage: ?          QUANTITY:20 CAPSULE(S);?
     Route: 048
     Dates: start: 20190927, end: 20190928
  4. RANITIDINE. [Concomitant]
     Active Substance: RANITIDINE
  5. ANTIVERT [Concomitant]
     Active Substance: MECLIZINE HYDROCHLORIDE
  6. CEFDINIR. [Suspect]
     Active Substance: CEFDINIR
     Indication: BACTERIAL INFECTION
     Dosage: ?          QUANTITY:20 CAPSULE(S);?
     Route: 048
     Dates: start: 20190927, end: 20190928
  7. EXCEDRIN [Concomitant]
     Active Substance: ACETAMINOPHEN\ASPIRIN\CAFFEINE

REACTIONS (11)
  - Hypersensitivity [None]
  - Oesophageal pain [None]
  - Hypoaesthesia oral [None]
  - Urticaria [None]
  - Pharyngeal swelling [None]
  - Renal pain [None]
  - Headache [None]
  - Dizziness [None]
  - Hypoaesthesia [None]
  - Faeces discoloured [None]
  - Peripheral swelling [None]

NARRATIVE: CASE EVENT DATE: 20190927
